FAERS Safety Report 9910392 (Version 3)
Quarter: 2014Q2

REPORT INFORMATION
  Report Type: Spontaneous
  Country: JP (occurrence: JP)
  Receive Date: 20140219
  Receipt Date: 20140530
  Transmission Date: 20141212
  Serious: Yes (Life-Threatening)
  Sender: FDA-Public Use
  Company Number: JP-PURDUE-GBR-2014-0017095

PATIENT
  Age: 88 Year
  Sex: Male

DRUGS (14)
  1. OXYCODONE HYDROCHLORIDE [Suspect]
     Indication: CANCER PAIN
     Dosage: 0.6 MG/HR, DAILY
     Route: 042
     Dates: start: 20131016, end: 20131016
  2. OXYCODONE HYDROCHLORIDE [Suspect]
     Dosage: 2 MG, SINGLE
     Route: 042
     Dates: start: 20131014, end: 20131014
  3. OXYCODONE HYDROCHLORIDE [Suspect]
     Dosage: 2 MG, BID
     Route: 042
     Dates: start: 20131011, end: 20131013
  4. OXYCODONE HYDROCHLORIDE [Suspect]
     Dosage: 2 MG, SEE TEXT
     Route: 042
     Dates: start: 20131010, end: 20131010
  5. OXYCODONE HYDROCHLORIDE [Suspect]
     Dosage: UNK, SEE TEXT
     Dates: start: 20131010, end: 20131015
  6. OXYCODONE HYDROCHLORIDE [Suspect]
     Dosage: 2 MG, TID
     Route: 042
     Dates: start: 20131009, end: 20131009
  7. OXYCODONE HYDROCHLORIDE [Suspect]
     Dosage: 0.5 MG/HR, DAILY
     Route: 042
     Dates: start: 20131009, end: 20131009
  8. OXYCODONE HCL PR TABLET [Concomitant]
     Indication: CANCER PAIN
     Dosage: 40 MG, DAILY
     Route: 048
     Dates: end: 20131009
  9. CELECOX [Concomitant]
     Indication: CANCER PAIN
     Dosage: 200 MG, DAILY
     Route: 048
  10. LYRICA [Concomitant]
     Indication: CANCER PAIN
     Dosage: 25 MG, DAILY
     Route: 048
  11. MAGMITT [Concomitant]
     Dosage: 3 G, DAILY
     Route: 048
  12. TAKEPRON [Concomitant]
     Dosage: 15 MG, DAILY
  13. SENNOSIDE                          /00571901/ [Concomitant]
     Dosage: 12 MG, DAILY
     Route: 048
  14. SEROQUEL [Concomitant]
     Dosage: 25 MG, DAILY
     Route: 048

REACTIONS (2)
  - Pulmonary artery thrombosis [Unknown]
  - Pneumonia [Recovering/Resolving]
